FAERS Safety Report 19321987 (Version 3)
Quarter: 2022Q1

REPORT INFORMATION
  Report Type: Spontaneous
  Country: US (occurrence: US)
  Receive Date: 20210528
  Receipt Date: 20220329
  Transmission Date: 20220423
  Serious: Yes (Other)
  Sender: FDA-Public Use
  Company Number: US-SA-SAC20210526000267

PATIENT
  Sex: Female

DRUGS (2)
  1. DUPIXENT [Suspect]
     Active Substance: DUPILUMAB
     Indication: Asthma
     Dosage: 300 MG, QOW
     Route: 058
     Dates: start: 202009
  2. DUPIXENT [Suspect]
     Active Substance: DUPILUMAB
     Indication: Dermatitis atopic

REACTIONS (16)
  - Rheumatoid arthritis [Unknown]
  - Insomnia [Unknown]
  - Hyperhidrosis [Unknown]
  - Lymphadenopathy [Recovered/Resolved]
  - Pyrexia [Recovered/Resolved]
  - Skin exfoliation [Recovered/Resolved]
  - Eye pruritus [Recovered/Resolved]
  - Arthralgia [Unknown]
  - Oral herpes [Unknown]
  - Crying [Unknown]
  - Eye discharge [Unknown]
  - Pruritus [Unknown]
  - Eye swelling [Unknown]
  - Joint stiffness [Unknown]
  - Drug ineffective [Unknown]
  - Product use issue [Unknown]

NARRATIVE: CASE EVENT DATE: 20200901
